FAERS Safety Report 19374975 (Version 6)
Quarter: 2022Q2

REPORT INFORMATION
  Report Type: Spontaneous
  Country: GB (occurrence: GB)
  Receive Date: 20210604
  Receipt Date: 20220404
  Transmission Date: 20220720
  Serious: Yes (Hospitalization)
  Sender: FDA-Public Use
  Company Number: GB-VERTEX PHARMACEUTICALS-2021-008381

PATIENT
  Age: 17 Year
  Sex: Female

DRUGS (9)
  1. ELEXACAFTOR\IVACAFTOR\TEZACAFTOR [Suspect]
     Active Substance: ELEXACAFTOR\IVACAFTOR\TEZACAFTOR
     Indication: Cystic fibrosis
     Dosage: 2 TABLETS (100MG IVACAFTOR/50MG TEZACAFTOR/100MG ELEXACAFTOR) AM
     Route: 048
     Dates: start: 202011, end: 202105
  2. ELEXACAFTOR\IVACAFTOR\TEZACAFTOR [Suspect]
     Active Substance: ELEXACAFTOR\IVACAFTOR\TEZACAFTOR
     Dosage: 1 TAB IN MORNING
     Route: 048
     Dates: start: 2021, end: 2021
  3. ELEXACAFTOR\IVACAFTOR\TEZACAFTOR [Suspect]
     Active Substance: ELEXACAFTOR\IVACAFTOR\TEZACAFTOR
     Dosage: 2 TABS IN AM, ALTERNATING WITH 1 TAB IN AM ON ALTERNATE DAYS (LOWER DOSE)
     Route: 048
     Dates: start: 2021
  4. ELEXACAFTOR\IVACAFTOR\TEZACAFTOR [Suspect]
     Active Substance: ELEXACAFTOR\IVACAFTOR\TEZACAFTOR
     Dosage: LOWER DOSE
     Route: 048
  5. KALYDECO [Suspect]
     Active Substance: IVACAFTOR
     Indication: Cystic fibrosis
     Dosage: 1 TAB(150MG IVACAFTOR)PM
     Route: 048
     Dates: start: 202011, end: 202105
  6. KALYDECO [Suspect]
     Active Substance: IVACAFTOR
     Dosage: REDUCED DOSE
     Route: 048
     Dates: start: 2021, end: 2021
  7. KALYDECO [Suspect]
     Active Substance: IVACAFTOR
     Dosage: TABS IN AM, ALTERNATING WITH 1 TAB IN AM ON ALTERNATE DAYS (LOWER DOSE)
     Route: 048
     Dates: start: 2021
  8. MELATONIN [Concomitant]
     Active Substance: MELATONIN
  9. FLUOXETINE [Concomitant]
     Active Substance: FLUOXETINE HYDROCHLORIDE

REACTIONS (3)
  - Mental disorder [Not Recovered/Not Resolved]
  - Cystic fibrosis [Unknown]
  - Depression [Unknown]
